FAERS Safety Report 14600181 (Version 1)
Quarter: 2018Q1

REPORT INFORMATION
  Report Type: Spontaneous
  Country: US (occurrence: US)
  Receive Date: 20180305
  Receipt Date: 20180305
  Transmission Date: 20180509
  Serious: Yes (Other)
  Sender: FDA-Public Use
  Company Number: US-JNJFOC-20180233290

PATIENT
  Age: 42 Year
  Sex: Male

DRUGS (16)
  1. REMICADE [Suspect]
     Active Substance: INFLIXIMAB
     Indication: CROHN^S DISEASE
     Route: 042
     Dates: start: 20150911
  2. REMICADE [Suspect]
     Active Substance: INFLIXIMAB
     Indication: CROHN^S DISEASE
     Route: 042
     Dates: start: 20170329
  3. IRON [Concomitant]
     Active Substance: IRON
     Route: 048
     Dates: start: 20080714
  4. LORATADINE. [Concomitant]
     Active Substance: LORATADINE
     Route: 048
  5. NUVIGIL [Concomitant]
     Active Substance: ARMODAFINIL
     Route: 048
     Dates: start: 20100923
  6. GLUCOSAMINE W/METHYLSULFONYLMETHANE [Concomitant]
     Route: 065
  7. CANASA [Concomitant]
     Active Substance: MESALAMINE
     Indication: INFLAMMATORY BOWEL DISEASE
     Route: 065
     Dates: start: 20140630
  8. ZINC. [Concomitant]
     Active Substance: ZINC
     Route: 048
     Dates: start: 20161109
  9. IMURAN [Concomitant]
     Active Substance: AZATHIOPRINE
     Route: 048
     Dates: start: 20170227
  10. DEXILANT [Concomitant]
     Active Substance: DEXLANSOPRAZOLE
     Indication: EOSINOPHILIC OESOPHAGITIS
     Route: 048
     Dates: start: 20170227
  11. CALCIUM CITRATE [Concomitant]
     Active Substance: CALCIUM CITRATE
     Route: 048
     Dates: start: 20161109
  12. ULTRAM [Concomitant]
     Active Substance: TRAMADOL HYDROCHLORIDE
     Route: 048
     Dates: start: 20151116
  13. FOLIC ACID. [Concomitant]
     Active Substance: FOLIC ACID
     Route: 048
     Dates: start: 20161109
  14. EPIPEN [Concomitant]
     Active Substance: EPINEPHRINE
     Route: 065
     Dates: start: 20090708
  15. PROVENTIL [Concomitant]
     Active Substance: ALBUTEROL
     Route: 065
     Dates: start: 20110513
  16. VITAMIN D3 [Concomitant]
     Active Substance: CHOLECALCIFEROL
     Route: 048
     Dates: start: 20161109

REACTIONS (5)
  - Hepatic steatosis [Unknown]
  - Rectal tenesmus [Unknown]
  - Scar [Unknown]
  - Arthralgia [Recovered/Resolved]
  - Colonic abscess [Unknown]

NARRATIVE: CASE EVENT DATE: 201703
